FAERS Safety Report 10825787 (Version 1)
Quarter: 2015Q1

REPORT INFORMATION
  Report Type: Spontaneous
  Country: SE (occurrence: SE)
  Receive Date: 20150219
  Receipt Date: 20150219
  Transmission Date: 20150721
  Serious: Yes (Other)
  Sender: FDA-Public Use
  Company Number: SE-AMGEN-SWESP2015014862

PATIENT
  Age: 89 Year
  Sex: Female

DRUGS (6)
  1. KALCIPOS [Concomitant]
     Active Substance: CALCIUM CARBONATE
  2. NIFEREX                            /00023531/ [Concomitant]
  3. PROLIA [Suspect]
     Active Substance: DENOSUMAB
     Indication: OSTEOPOROSIS
     Dosage: 60 MG, Q6MO
     Route: 058
     Dates: start: 20141219, end: 20150202
  4. OMEPRAZOLE. [Concomitant]
     Active Substance: OMEPRAZOLE
  5. TROMBYL [Concomitant]
     Active Substance: ASPIRIN
  6. BEHEPAN                            /00056201/ [Concomitant]

REACTIONS (1)
  - Osteonecrosis of jaw [Not Recovered/Not Resolved]

NARRATIVE: CASE EVENT DATE: 20150130
